FAERS Safety Report 7141613-6 (Version None)
Quarter: 2010Q4

REPORT INFORMATION
  Report Type: 
  Country: None (occurrence: None)
  Receive Date: 20101124
  Receipt Date: 20101108
  Transmission Date: 20110411
  Serious: Yes (Other)
  Sender: FDA-Public Use
  Company Number: 2010-NL-00477NL

PATIENT
  Sex: Female

DRUGS (2)
  1. BISOLBRUIS (PULMOVENT) (ACETYLCYSTEINE) (ACETYLCYSTEINE) (VERUM) [Suspect]
  2. PARACETAMOL (PARACETAMOL) (PARACETAMOL) (VERUM) [Suspect]

REACTIONS (1)
  - BLOOD ALKALINE PHOSPHATASE INCREASED [None]
